FAERS Safety Report 9621284 (Version 1)
Quarter: 2013Q4

REPORT INFORMATION
  Report Type: Spontaneous
  Country: US (occurrence: US)
  Receive Date: 20131015
  Receipt Date: 20131015
  Transmission Date: 20140711
  Serious: Yes (Other)
  Sender: FDA-Public Use
  Company Number: US-TEVA-437901USA

PATIENT
  Age: 39 Year
  Sex: Female

DRUGS (1)
  1. PARAGARD 380A [Suspect]
     Route: 015
     Dates: start: 20130311

REACTIONS (2)
  - Uterine perforation [Unknown]
  - Abdominal pain [Unknown]
